FAERS Safety Report 10247824 (Version 1)
Quarter: 2014Q2

REPORT INFORMATION
  Report Type: Spontaneous
  Country: US (occurrence: US)
  Receive Date: 20140619
  Receipt Date: 20140619
  Transmission Date: 20141212
  Serious: No
  Sender: FDA-Public Use
  Company Number: US-009507513-1405USA006935

PATIENT
  Sex: Female
  Weight: 47.62 kg

DRUGS (2)
  1. CLARITIN [Suspect]
     Indication: URTICARIA
     Dosage: 10 MG, QD
     Route: 048
  2. CLARITIN [Suspect]
     Dosage: 10 MG, QD
     Route: 048

REACTIONS (1)
  - Drug ineffective for unapproved indication [Unknown]
